FAERS Safety Report 7674364-X (Version None)
Quarter: 2011Q3

REPORT INFORMATION
  Report Type: 
  Country: None (occurrence: None)
  Receive Date: 20110808
  Receipt Date: 20110725
  Transmission Date: 20111222
  Serious: Yes (Other)
  Sender: FDA-Public Use
  Company Number: 11-055-02

PATIENT
  Age: 12 Year
  Sex: Male

DRUGS (2)
  1. ZONISAMIDE [Concomitant]
  2. LEVETIRACETAM [Suspect]
     Indication: CONVULSION
     Dosage: SEE IMAGE

REACTIONS (2)
  - MYOCLONUS [None]
  - CONDITION AGGRAVATED [None]
